FAERS Safety Report 4383746-3 (Version None)
Quarter: 2004Q2

REPORT INFORMATION
  Report Type: 
  Country: None (occurrence: None)
  Receive Date: 20040608
  Receipt Date: 20030625
  Transmission Date: 20050107
  Serious: Yes (Other)
  Sender: FDA-Public Use
  Company Number: 200312168BCC

PATIENT
  Age: 39 Year
  Sex: Male
  Weight: 70.3075 kg

DRUGS (1)
  1. ALEVE [Suspect]
     Dosage: 220 MG, ONCE, ORAL
     Route: 048
     Dates: start: 20030625

REACTIONS (3)
  - HYPERSENSITIVITY [None]
  - OROPHARYNGEAL SWELLING [None]
  - PRURITUS GENERALISED [None]
